FAERS Safety Report 15484605 (Version 1)
Quarter: 2018Q4

REPORT INFORMATION
  Report Type: Spontaneous
  Country: CZ (occurrence: CZ)
  Receive Date: 20181010
  Receipt Date: 20181010
  Transmission Date: 20190205
  Serious: Yes (Other)
  Sender: FDA-Public Use
  Company Number: CZ-MYLANLABS-2018M1075112

PATIENT
  Age: 74 Year
  Sex: Male

DRUGS (6)
  1. CARBOPLATIN W/PACLITAXEL [Suspect]
     Active Substance: CARBOPLATIN\PACLITAXEL
     Indication: BRONCHIAL CARCINOMA
     Dosage: UNK
     Route: 050
  2. TAPENTADOL [Concomitant]
     Active Substance: TAPENTADOL
     Indication: PRODUCT USED FOR UNKNOWN INDICATION
     Dosage: UNK
  3. NEURONTIN [Suspect]
     Active Substance: GABAPENTIN
     Indication: NEURALGIA
     Dosage: 300 MG, QD (100 MG, TID)
     Route: 065
  4. OXYCODONE [Concomitant]
     Active Substance: OXYCODONE
     Indication: PRODUCT USED FOR UNKNOWN INDICATION
     Dosage: UNK
  5. FENTANYL. [Suspect]
     Active Substance: FENTANYL
     Indication: PAIN
     Dosage: UNK
     Route: 065
  6. TRAMADOL. [Concomitant]
     Active Substance: TRAMADOL
     Indication: PRODUCT USED FOR UNKNOWN INDICATION
     Dosage: UNK

REACTIONS (2)
  - Condition aggravated [Recovering/Resolving]
  - Neuralgia [Recovering/Resolving]
